FAERS Safety Report 4479400-X (Version None)
Quarter: 2004Q4

REPORT INFORMATION
  Report Type: 
  Country: None (occurrence: None)
  Receive Date: 20041015
  Receipt Date: 20040927
  Transmission Date: 20050328
  Serious: Yes (Death)
  Sender: FDA-Public Use
  Company Number: 2004236853US

PATIENT
  Age: 37 Year
  Sex: Female

DRUGS (4)
  1. ASPIRIN [Suspect]
     Dosage: ORAL
     Route: 048
  2. GLYNASE [Suspect]
  3. METFORMIN HYDROCHLORIDE [Suspect]
  4. RISPERDAL [Suspect]

REACTIONS (7)
  - CARDIAC ARREST [None]
  - HYPERVENTILATION [None]
  - HYPOTENSION [None]
  - MENTAL STATUS CHANGES [None]
  - MULTIPLE DRUG OVERDOSE [None]
  - OLIGURIA [None]
  - RESPIRATORY RATE DECREASED [None]
